FAERS Safety Report 6735944-9 (Version None)
Quarter: 2010Q2

REPORT INFORMATION
  Report Type: 
  Country: None (occurrence: None)
  Receive Date: 20100521
  Receipt Date: 20100514
  Transmission Date: 20101027
  Serious: Yes (Other)
  Sender: FDA-Public Use
  Company Number: B0652875A

PATIENT
  Sex: Male

DRUGS (7)
  1. FLOLAN [Suspect]
     Indication: POSTOPERATIVE CARE
     Dosage: 500MCG CUMULATIVE DOSE
     Route: 042
     Dates: start: 20100428, end: 20100429
  2. DOBUTREX [Concomitant]
     Indication: POSTOPERATIVE CARE
     Route: 065
     Dates: start: 20100401
  3. SILDENAFIL [Concomitant]
     Indication: POSTOPERATIVE CARE
     Route: 065
     Dates: start: 20100401
  4. PERFALGAN [Concomitant]
     Indication: POSTOPERATIVE CARE
     Route: 065
     Dates: start: 20100401
  5. LASIX [Concomitant]
     Indication: POSTOPERATIVE CARE
     Route: 065
     Dates: start: 20100401
  6. HYPNOVEL [Concomitant]
     Indication: POSTOPERATIVE CARE
     Route: 065
     Dates: start: 20100401
  7. SUFENTA PRESERVATIVE FREE [Concomitant]
     Indication: POSTOPERATIVE CARE
     Route: 065
     Dates: start: 20100401

REACTIONS (3)
  - DRUG PRESCRIBING ERROR [None]
  - HYPERTENSION [None]
  - OVERDOSE [None]
